FAERS Safety Report 24249208 (Version 4)
Quarter: 2025Q1

REPORT INFORMATION
  Report Type: Spontaneous
  Country: US (occurrence: US)
  Receive Date: 20240826
  Receipt Date: 20250102
  Transmission Date: 20250408
  Serious: Yes (Other)
  Sender: PFIZER
  Company Number: US-PFIZER INC-PV202400109790

PATIENT
  Age: 66 Year
  Sex: Female

DRUGS (1)
  1. LITFULO [Suspect]
     Active Substance: RITLECITINIB TOSYLATE

REACTIONS (5)
  - Headache [Recovering/Resolving]
  - Condition aggravated [Unknown]
  - Asthenia [Unknown]
  - Fatigue [Unknown]
  - Contusion [Unknown]
